FAERS Safety Report 12592808 (Version 1)
Quarter: 2016Q3

REPORT INFORMATION
  Report Type: Spontaneous
  Country: BR (occurrence: BR)
  Receive Date: 20160726
  Receipt Date: 20160726
  Transmission Date: 20161109
  Serious: Yes (Death, Life-Threatening, Hospitalization, Other)
  Sender: FDA-Public Use
  Company Number: BR-JNJFOC-20160211120

PATIENT
  Age: 68 Year
  Sex: Male

DRUGS (5)
  1. XARELTO [Suspect]
     Active Substance: RIVAROXABAN
     Indication: PRODUCT USED FOR UNKNOWN INDICATION
     Route: 048
     Dates: start: 20150929, end: 20160205
  2. CONCOR [Concomitant]
     Active Substance: BISOPROLOL FUMARATE
     Indication: CARDIAC DISORDER
     Route: 048
  3. ABIRATERONE [Concomitant]
     Active Substance: ABIRATERONE
     Indication: PROSTATE CANCER
     Route: 065
  4. FUROSEMIDE. [Concomitant]
     Active Substance: FUROSEMIDE
     Indication: CARDIAC DISORDER
     Route: 048
  5. PREDNISONE. [Concomitant]
     Active Substance: PREDNISONE
     Route: 065

REACTIONS (7)
  - Sepsis [Unknown]
  - Death [Fatal]
  - Off label use [Unknown]
  - Haemorrhagic stroke [Not Recovered/Not Resolved]
  - Drug ineffective [Unknown]
  - Pneumonia [Unknown]
  - Haemorrhagic stroke [Not Recovered/Not Resolved]

NARRATIVE: CASE EVENT DATE: 2016
